FAERS Safety Report 7897505-8 (Version None)
Quarter: 2011Q4

REPORT INFORMATION
  Report Type: 
  Country: None (occurrence: None)
  Receive Date: 20111107
  Receipt Date: 20111027
  Transmission Date: 20120403
  Serious: Yes (Hospitalization, Other)
  Sender: FDA-Public Use
  Company Number: JP-JNJFOC-20111012940

PATIENT
  Age: 34 Year
  Sex: Female

DRUGS (4)
  1. BLONANSERIN [Concomitant]
     Route: 048
  2. RISPERIDONE [Suspect]
     Route: 048
  3. RISPERIDONE [Suspect]
     Indication: SCHIZOPHRENIA
     Dosage: 4-6 MG PER DAY
     Route: 048
  4. BLONANSERIN [Concomitant]
     Indication: PRODUCT USED FOR UNKNOWN INDICATION
     Route: 048

REACTIONS (7)
  - WEIGHT INCREASED [None]
  - THERAPY CESSATION [None]
  - DYSKINESIA [None]
  - HALLUCINATION, AUDITORY [None]
  - ELECTROCARDIOGRAM QT PROLONGED [None]
  - DYSTONIA [None]
  - HYPERPHAGIA [None]
